FAERS Safety Report 8503314-9 (Version None)
Quarter: 2012Q3

REPORT INFORMATION
  Report Type: 
  Country: None (occurrence: None)
  Receive Date: 20120702
  Receipt Date: 20120522
  Transmission Date: 20120928
  Serious: Yes (Hospitalization)
  Sender: FDA-Public Use
  Company Number: GB-022377

PATIENT
  Age: 62 Year
  Sex: Male

DRUGS (2)
  1. VITAMIN B (TABLET) [Concomitant]
  2. CHLORAMBUCIL (CHLORAMBUCIL) (UNKNOWN) [Suspect]
     Indication: CHRONIC LYMPHOCYTIC LEUKAEMIA
     Dosage: 10 MG/M2 AT DAYS 1-7 EVERY 28 DAYS, ORAL
     Route: 048
     Dates: start: 20110308

REACTIONS (4)
  - PNEUMONIA [None]
  - EMPYEMA [None]
  - FEBRILE NEUTROPENIA [None]
  - SEPSIS [None]
